FAERS Safety Report 15249022 (Version 1)
Quarter: 2018Q3

REPORT INFORMATION
  Report Type: Spontaneous
  Country: US (occurrence: US)
  Receive Date: 20180716
  Receipt Date: 20180716
  Transmission Date: 20181010
  Serious: Yes (Disabling)
  Sender: FDA-Public Use
  Company Number: None

PATIENT
  Age: 75 Year
  Sex: Male
  Weight: 90 kg

DRUGS (11)
  1. ATVORSTATIN CALCIUM [Suspect]
     Active Substance: ATORVASTATIN CALCIUM
     Indication: HYPERLIPIDAEMIA
     Dosage: ?          QUANTITY:1 CAPSULE(S);?
     Route: 048
     Dates: start: 20180601, end: 20180712
  2. METOPROLOL. [Concomitant]
     Active Substance: METOPROLOL
  3. MULTIVITAMIN [Concomitant]
     Active Substance: VITAMINS
  4. DORZOLIMIDE/TIMOLOL [Concomitant]
  5. LIPITOR (G) [Concomitant]
  6. ASPIRIN. [Concomitant]
     Active Substance: ASPIRIN
  7. AREDS2 [Concomitant]
  8. TRAVATAN [Concomitant]
     Active Substance: TRAVOPROST
  9. LISINOPRIL. [Concomitant]
     Active Substance: LISINOPRIL
  10. VITAMIN D3 [Concomitant]
     Active Substance: CHOLECALCIFEROL
  11. ZETIA (G) [Concomitant]

REACTIONS (2)
  - Diarrhoea [None]
  - Product substitution issue [None]

NARRATIVE: CASE EVENT DATE: 20180601
